FAERS Safety Report 23463435 (Version 1)
Quarter: 2024Q1

REPORT INFORMATION
  Report Type: Spontaneous
  Country: FR (occurrence: FR)
  Receive Date: 20240131
  Receipt Date: 20240131
  Transmission Date: 20240409
  Serious: Yes (Other)
  Sender: FDA-Public Use
  Company Number: None

PATIENT
  Age: 44 Year
  Sex: Female

DRUGS (2)
  1. KEYTRUDA [Suspect]
     Active Substance: PEMBROLIZUMAB
     Indication: Triple negative breast cancer
     Dosage: 4 CURES IN TOTAL, 1 DOSAGE FORM CYCLICAL
     Route: 042
     Dates: start: 20230525, end: 20230728
  2. KEYTRUDA [Suspect]
     Active Substance: PEMBROLIZUMAB
     Dosage: 4 CURES IN TOTAL, 1 DOSAGE FORM CYCLICAL
     Route: 042
     Dates: start: 20230825, end: 20231027

REACTIONS (2)
  - Troponin increased [Not Recovered/Not Resolved]
  - Immune-mediated hyperthyroidism [Not Recovered/Not Resolved]

NARRATIVE: CASE EVENT DATE: 20231211
